FAERS Safety Report 22280342 (Version 1)
Quarter: 2023Q2

REPORT INFORMATION
  Report Type: Spontaneous
  Country: JP (occurrence: JP)
  Receive Date: 20230503
  Receipt Date: 20230503
  Transmission Date: 20230722
  Serious: Yes (Other)
  Sender: FDA-Public Use
  Company Number: JP-MSD-2303JPN000790J

PATIENT
  Age: 57 Year
  Sex: Male

DRUGS (5)
  1. CANCIDAS [Suspect]
     Active Substance: CASPOFUNGIN ACETATE
     Indication: Aspergillus infection
     Dosage: UNK
     Route: 041
     Dates: start: 20230215, end: 2023
  2. FUROSEMIDE [Suspect]
     Active Substance: FUROSEMIDE
     Indication: Oedema
     Dosage: UNK
     Route: 048
     Dates: start: 2023, end: 2023
  3. AMBISOME [Suspect]
     Active Substance: AMPHOTERICIN B
     Indication: Antifungal treatment
     Dosage: UNK
     Route: 065
     Dates: start: 20230215, end: 2023
  4. VORICONAZOLE [Concomitant]
     Active Substance: VORICONAZOLE
     Indication: Antifungal treatment
     Dosage: UNK
     Route: 048
     Dates: start: 20230215, end: 20230423
  5. FLUCYTOSINE [Concomitant]
     Active Substance: FLUCYTOSINE
     Indication: Antifungal treatment
     Dosage: UNK
     Route: 065
     Dates: start: 20230215, end: 2023

REACTIONS (4)
  - Brain oedema [Unknown]
  - Renal impairment [Recovered/Resolved]
  - Hypokalaemia [Unknown]
  - Oedema [Unknown]

NARRATIVE: CASE EVENT DATE: 20230101
